FAERS Safety Report 20431002 (Version 2)
Quarter: 2022Q1

REPORT INFORMATION
  Report Type: Spontaneous
  Country: US (occurrence: US)
  Receive Date: 20220204
  Receipt Date: 20220302
  Transmission Date: 20220424
  Serious: No
  Sender: FDA-Public Use
  Company Number: US-PFIZER INC-202101550049

PATIENT
  Age: 75 Year
  Sex: Female

DRUGS (4)
  1. IBRANCE [Suspect]
     Active Substance: PALBOCICLIB
     Dosage: UNK (WAS IN HER 3RD WEEK OF TAKING IBRANCE)
  2. IBRANCE [Suspect]
     Active Substance: PALBOCICLIB
     Dosage: 100 MG
  3. IBRANCE [Suspect]
     Active Substance: PALBOCICLIB
     Dosage: 125 MG, DAILY (21 DAYS)
     Dates: start: 20211022
  4. FASLODEX [Concomitant]
     Active Substance: FULVESTRANT
     Dosage: UNK, MONTHLY

REACTIONS (7)
  - Abdominal discomfort [Unknown]
  - Epistaxis [Unknown]
  - Fatigue [Unknown]
  - Platelet disorder [Recovered/Resolved]
  - White blood cell count decreased [Unknown]
  - Asthenia [Unknown]
  - Dyspnoea [Unknown]
